FAERS Safety Report 24783872 (Version 1)
Quarter: 2024Q4

REPORT INFORMATION
  Report Type: Spontaneous
  Country: US (occurrence: US)
  Receive Date: 20241227
  Receipt Date: 20241227
  Transmission Date: 20250115
  Serious: Yes (Other)
  Sender: ORGANON
  Company Number: US-ORGANON-O2412USA002292

PATIENT
  Sex: Female
  Weight: 85.27 kg

DRUGS (1)
  1. NEXPLANON [Suspect]
     Active Substance: ETONOGESTREL
     Indication: Contraception
     Dosage: 68 MG, 1 IMPLANT IN LEFT ARM
     Route: 059
     Dates: start: 202310

REACTIONS (4)
  - Ectopic pregnancy with contraceptive device [Recovered/Resolved]
  - Abortion induced [Not Recovered/Not Resolved]
  - Unintended pregnancy [Recovered/Resolved]
  - Pain [Not Recovered/Not Resolved]
